FAERS Safety Report 23075833 (Version 1)
Quarter: 2023Q4

REPORT INFORMATION
  Report Type: Spontaneous
  Country: FR (occurrence: FR)
  Receive Date: 20231017
  Receipt Date: 20231017
  Transmission Date: 20240110
  Serious: Yes (Hospitalization, Other)
  Sender: FDA-Public Use
  Company Number: FR-SUN PHARMACEUTICAL INDUSTRIES LTD-2023RR-412464

PATIENT
  Age: 56 Year
  Sex: Male
  Weight: 61.5 kg

DRUGS (3)
  1. PAROXETINE [Suspect]
     Active Substance: PAROXETINE
     Indication: Mixed anxiety and depressive disorder
     Dosage: UNK
     Route: 048
     Dates: start: 20230302
  2. OXAZEPAM [Suspect]
     Active Substance: OXAZEPAM
     Indication: Intentional product misuse
     Dosage: UNK
     Route: 048
     Dates: start: 202303
  3. TRAMADOL [Suspect]
     Active Substance: TRAMADOL\TRAMADOL HYDROCHLORIDE
     Indication: Back pain
     Dosage: UP TO 600MG PER DAY
     Route: 048
     Dates: end: 20230303

REACTIONS (4)
  - Head injury [Recovering/Resolving]
  - Loss of consciousness [Recovered/Resolved]
  - Cerebral haematoma [Recovering/Resolving]
  - Drug use disorder [Recovering/Resolving]

NARRATIVE: CASE EVENT DATE: 20230303
